FAERS Safety Report 8841434 (Version 3)
Quarter: 2013Q3

REPORT INFORMATION
  Report Type: Report from Study
  Country: GB (occurrence: GB)
  Receive Date: 20121015
  Receipt Date: 20130808
  Transmission Date: 20140515
  Serious: Yes (Disabling, Other)
  Sender: FDA-Public Use
  Company Number: GB-ASTRAZENECA-2012SE77610

PATIENT
  Age: 21125 Day
  Sex: Male

DRUGS (8)
  1. AZD6140 [Suspect]
     Indication: CORONARY ARTERY DISEASE
     Route: 048
     Dates: start: 20120126, end: 20120704
  2. GTN [Concomitant]
     Indication: ANGINA PECTORIS
     Route: 060
  3. VENTOLIN [Concomitant]
     Indication: ASTHMA
     Route: 055
  4. ATORVASTATION [Concomitant]
     Indication: HYPERCHOLESTEROLAEMIA
     Route: 048
  5. LEVOTHYROXINE [Concomitant]
     Indication: THYROID THERAPY
     Route: 048
  6. RANOLAZIN [Concomitant]
     Indication: ANGINA PECTORIS
     Route: 048
  7. RAMIPRIL [Concomitant]
     Indication: HYPERTENSION
     Route: 048
  8. ASA [Concomitant]
     Route: 048
     Dates: end: 20120713

REACTIONS (2)
  - Blindness unilateral [Not Recovered/Not Resolved]
  - Muscular weakness [Recovered/Resolved]
